FAERS Safety Report 6766476-X (Version None)
Quarter: 2010Q2

REPORT INFORMATION
  Report Type: 
  Country: None (occurrence: None)
  Receive Date: 20100609
  Receipt Date: 20100531
  Transmission Date: 20101027
  Serious: Yes (Hospitalization)
  Sender: FDA-Public Use
  Company Number: A-CH2010-36977

PATIENT
  Age: 39 Year
  Sex: Female
  Weight: 46 kg

DRUGS (10)
  1. TRACLEER [Suspect]
     Indication: PULMONARY ARTERIAL HYPERTENSION
     Dosage: 125 MG, BID, ORAL
     Route: 048
     Dates: start: 20090519
  2. EPOPROSTENOL SODIUM [Concomitant]
  3. SILDENAFIL CITRATE [Concomitant]
  4. FUROSEMIDE (FUROSEMIDE SODIUM) [Concomitant]
  5. SPIRONOLACTONE [Concomitant]
  6. POTASSIUM CHLORIDE [Concomitant]
  7. FERROUS SULFATE TAB [Concomitant]
  8. SORAFENIB TOSILATE (SORAFENIB TOSILATE) [Concomitant]
  9. TRICHLOPRMETHIAZIDE (TRICHLORMETHIAZIDE) [Concomitant]
  10. OXYGEN (OXYGEN) [Concomitant]

REACTIONS (2)
  - PULMONARY ALVEOLAR HAEMORRHAGE [None]
  - PYREXIA [None]
